FAERS Safety Report 4616680-1 (Version None)
Quarter: 2005Q2

REPORT INFORMATION
  Report Type: 
  Country: None (occurrence: None)
  Receive Date: 20050311
  Receipt Date: 20050207
  Transmission Date: 20051028
  Serious: No
  Sender: FDA-Public Use
  Company Number: 2005-00199

PATIENT
  Age: 66 Year
  Sex: Female
  Weight: 83.4 kg

DRUGS (6)
  1. VELCADE [Suspect]
     Indication: MULTIPLE MYELOMA
     Dosage: 2.60 MG, 2/WEEK, IV BOLUS
     Route: 040
     Dates: start: 20041111
  2. LISINOPRIL W/HYDROCHLOROTHIAZIDE (HYDROCHLOROTHIAZIDE, LISINOPRIL) [Concomitant]
  3. ZOLOFT [Concomitant]
  4. AMBIEN [Concomitant]
  5. EMEND [Concomitant]
  6. NEXIUM [Concomitant]

REACTIONS (1)
  - PLATELET COUNT DECREASED [None]
